FAERS Safety Report 8144372-3 (Version None)
Quarter: 2012Q1

REPORT INFORMATION
  Report Type: 
  Country: None (occurrence: None)
  Receive Date: 20120217
  Receipt Date: 20120214
  Transmission Date: 20120608
  Serious: Yes (Hospitalization)
  Sender: FDA-Public Use
  Company Number: DE-ROCHE-1002764

PATIENT
  Sex: Male
  Weight: 88 kg

DRUGS (20)
  1. AMIODARONE HCL [Concomitant]
     Indication: ATRIAL FIBRILLATION
     Dosage: 1DF
  2. TIOPRONIN [Concomitant]
     Indication: CHRONIC OBSTRUCTIVE PULMONARY DISEASE
  3. METOCLOPRAMIDE [Concomitant]
     Indication: NAUSEA
     Dosage: DOSE: 36 DROPS PRN 1DFX4/DAY
  4. AVASTIN [Suspect]
     Indication: NON-SMALL CELL LUNG CANCER
     Dosage: DATE OF LAST DOSE PRIOR TO EVENT: 24/JAN/2012
     Route: 042
     Dates: start: 20110923
  5. PEMETREXED DISODIUM [Suspect]
     Dates: start: 20111014
  6. RAMIPRIL [Concomitant]
     Indication: HYPERTENSION
     Dosage: 1DF
  7. PANTOPRAZOLE [Concomitant]
     Indication: PROPHYLAXIS
     Dosage: 1DF
  8. ONDANSETRON [Concomitant]
     Indication: NAUSEA
     Dosage: PRN 1DFX2/D
  9. ASPIRIN [Concomitant]
     Indication: MYOCARDIAL INFARCTION
     Dosage: 1DF
  10. FUROSEMIDE [Concomitant]
     Indication: PROPHYLAXIS
  11. CARBOPLATIN [Suspect]
     Dosage: 4 AUC
     Dates: start: 20111014
  12. SIMVASTATIN [Concomitant]
     Indication: HYPERLIPIDAEMIA
     Dosage: 1DF
  13. PEMETREXED DISODIUM [Suspect]
     Indication: NON-SMALL CELL LUNG CANCER
     Route: 042
     Dates: start: 20110923
  14. SALMETEROL XINAFOATE/FLUTICASONE PROPIONATE [Concomitant]
     Indication: CHRONIC OBSTRUCTIVE PULMONARY DISEASE
     Dosage: DOSE: 50/250UG 1DF
  15. ONDANSETRON [Concomitant]
     Indication: PROPHYLAXIS
  16. FOLSAN [Concomitant]
     Indication: PREMEDICATION
     Dosage: 1DF
  17. POTASSIUM CHLORIDE [Concomitant]
     Indication: PROPHYLAXIS
  18. CARBOPLATIN [Suspect]
     Indication: NON-SMALL CELL LUNG CANCER
     Dosage: 5 AUC
     Route: 042
     Dates: start: 20110923
  19. METOPROLOL TARTRATE [Concomitant]
     Indication: HYPERTENSION
     Dosage: 1DF
  20. FUROSEMIDE [Concomitant]
     Indication: HYPERTENSION

REACTIONS (5)
  - DIARRHOEA [None]
  - PNEUMONIA [None]
  - DYSPNOEA [None]
  - CHOLECYSTITIS [None]
  - LUNG INFECTION [None]
